FAERS Safety Report 9556087 (Version 1)
Quarter: 2013Q3

REPORT INFORMATION
  Report Type: Spontaneous
  Country: GB (occurrence: None)
  Receive Date: 20130924
  Receipt Date: 20130924
  Transmission Date: 20140515
  Serious: Yes (Other)
  Sender: FDA-Public Use
  Company Number: KAD201309-001201

PATIENT
  Age: 36 Year
  Sex: Male

DRUGS (3)
  1. RIBAVIRIN [Suspect]
     Indication: HEPATITIS C
     Route: 048
     Dates: start: 20120918
  2. INCIVO [Suspect]
     Indication: HEPATITIS C
     Route: 048
     Dates: start: 20120918
  3. PEGINTERFERON ALFA-2B (PEGINTERFERON ALFA-2B) [Suspect]
     Indication: HEPATITIS C
     Route: 058
     Dates: start: 20120918

REACTIONS (10)
  - Decreased appetite [None]
  - Depression [None]
  - Feeling abnormal [None]
  - Hepatitis C RNA fluctuation [None]
  - Lethargy [None]
  - Photophobia [None]
  - Ageusia [None]
  - Depressed mood [None]
  - Panic attack [None]
  - Rash [None]
